FAERS Safety Report 25386377 (Version 1)
Quarter: 2025Q2

REPORT INFORMATION
  Report Type: Other
  Country: US (occurrence: US)
  Receive Date: 20250602
  Receipt Date: 20250602
  Transmission Date: 20250716
  Serious: No
  Sender: BAJAJ MEDICAL, LLC
  Company Number: US-Bajaj Medical, LLC-2177910

PATIENT
  Age: 81 Year
  Sex: Female
  Weight: 43.182 kg

DRUGS (1)
  1. CHLORHEXIDINE GLUCONATE [Suspect]
     Active Substance: CHLORHEXIDINE GLUCONATE
     Indication: Gingival discomfort
     Dates: start: 20250521, end: 20250528

REACTIONS (1)
  - Multiple allergies [Recovering/Resolving]

NARRATIVE: CASE EVENT DATE: 20250522
